FAERS Safety Report 8848525 (Version 1)
Quarter: 2012Q4

REPORT INFORMATION
  Report Type: Report from Study
  Country: CA (occurrence: CA)
  Receive Date: 20121018
  Receipt Date: 20121018
  Transmission Date: 20130627
  Serious: Yes (Life-Threatening)
  Sender: FDA-Public Use
  Company Number: CA-JNJFOC-20121005972

PATIENT
  Age: 64 Year
  Sex: Female
  Weight: 65 kg

DRUGS (13)
  1. REMICADE [Suspect]
     Indication: RHEUMATOID ARTHRITIS
     Route: 042
     Dates: start: 20120828
  2. REMICADE [Suspect]
     Indication: RHEUMATOID ARTHRITIS
     Dosage: loading dose 3
     Route: 042
     Dates: start: 20121009
  3. MISOPROSTOL [Concomitant]
     Route: 065
  4. RISEDRONATE [Concomitant]
     Route: 065
  5. SULFASALAZINE [Concomitant]
     Route: 065
  6. CALCIUM AND MAGNESIUM [Concomitant]
     Route: 065
  7. TRAMADOL [Concomitant]
     Route: 065
  8. FERROUS GLUCONATE [Concomitant]
     Route: 065
  9. LANSOPRAZOLE [Concomitant]
     Route: 048
  10. SYNTHROID [Concomitant]
     Route: 065
  11. ADVIL [Concomitant]
     Route: 065
  12. LEFLUNOMIDE [Concomitant]
     Indication: PAIN
     Route: 048
  13. MACROBID (NITROFURANTOIN) [Concomitant]
     Indication: CYSTITIS
     Route: 065

REACTIONS (5)
  - Fall [Not Recovered/Not Resolved]
  - Loss of consciousness [Not Recovered/Not Resolved]
  - Pruritus [Not Recovered/Not Resolved]
  - Rash [Not Recovered/Not Resolved]
  - Headache [Not Recovered/Not Resolved]
